FAERS Safety Report 15020083 (Version 2)
Quarter: 2019Q3

REPORT INFORMATION
  Report Type: Spontaneous
  Country: FR (occurrence: FR)
  Receive Date: 20180618
  Receipt Date: 20190823
  Transmission Date: 20191004
  Serious: Yes (Death, Congenital Anomaly)
  Sender: FDA-Public Use
  Company Number: FR-TEVA-2018-FR-907324

PATIENT
  Sex: Male

DRUGS (3)
  1. CISPLATIN. [Suspect]
     Active Substance: CISPLATIN
     Indication: TESTIS CANCER
     Route: 041
     Dates: start: 20140728, end: 20140801
  2. BLEOMYCINE [Suspect]
     Active Substance: BLEOMYCIN SULFATE
     Indication: TESTIS CANCER
     Route: 042
     Dates: start: 20140728, end: 20140811
  3. ETOPOSIDE. [Suspect]
     Active Substance: ETOPOSIDE
     Indication: TESTIS CANCER
     Route: 041
     Dates: start: 20140728, end: 20140801

REACTIONS (2)
  - Trisomy 13 [Fatal]
  - Paternal exposure timing unspecified [Fatal]

NARRATIVE: CASE EVENT DATE: 2014
